FAERS Safety Report 8100508-1 (Version None)
Quarter: 2012Q1

REPORT INFORMATION
  Report Type: 
  Country: None (occurrence: None)
  Receive Date: 20120129
  Receipt Date: 20111110
  Transmission Date: 20120608
  Serious: No
  Sender: FDA-Public Use
  Company Number: US-ABBOTT-11P-163-0873242-00

PATIENT
  Age: 46 Year
  Sex: Female

DRUGS (5)
  1. NAPROXEN (ALEVE) [Concomitant]
     Indication: PAIN
  2. UNKNOWN ANXIETY MEDICATION [Concomitant]
     Indication: PRODUCT USED FOR UNKNOWN INDICATION
  3. HUMIRA [Suspect]
     Indication: RHEUMATOID ARTHRITIS
     Dates: start: 20111001
  4. METHOTREXATE [Concomitant]
     Indication: PRODUCT USED FOR UNKNOWN INDICATION
     Dosage: 8 PILLS EVERY SUNDAY
  5. PREDNISONE TAB [Concomitant]
     Indication: PRODUCT USED FOR UNKNOWN INDICATION

REACTIONS (1)
  - INJECTION SITE PAIN [None]
